FAERS Safety Report 8276713-0 (Version None)
Quarter: 2012Q2

REPORT INFORMATION
  Report Type: 
  Country: None (occurrence: None)
  Receive Date: 20120412
  Receipt Date: 20120412
  Transmission Date: 20120825
  Serious: Yes (Life-Threatening, Hospitalization, Other)
  Sender: FDA-Public Use
  Company Number: None

PATIENT
  Age: 20 Year
  Sex: Female
  Weight: 52.163 kg

DRUGS (3)
  1. CYMBALTA [Concomitant]
  2. JUNEL FE 1.5/30 [Concomitant]
  3. NUVIGIL [Suspect]
     Indication: DISTURBANCE IN ATTENTION
     Dosage: 30 -QTY- WHITE OVAL TABLET
     Route: 048
     Dates: start: 20120222, end: 20120222

REACTIONS (3)
  - ANAPHYLACTIC REACTION [None]
  - IMPAIRED WORK ABILITY [None]
  - EDUCATIONAL PROBLEM [None]
